FAERS Safety Report 6369871-6 (Version None)
Quarter: 2009Q3

REPORT INFORMATION
  Report Type: 
  Country: None (occurrence: None)
  Receive Date: 20090923
  Receipt Date: 20070510
  Transmission Date: 20100115
  Serious: Yes (Other)
  Sender: FDA-Public Use
  Company Number: US-ASTRAZENECA-2006UW10515

PATIENT
  Age: 394 Month
  Sex: Female
  Weight: 59.9 kg

DRUGS (17)
  1. SEROQUEL [Suspect]
     Indication: ANXIETY
     Route: 048
     Dates: start: 20000101, end: 20040101
  2. SEROQUEL [Suspect]
     Indication: INSOMNIA
     Route: 048
     Dates: start: 20000101, end: 20040101
  3. SEROQUEL [Suspect]
     Dosage: STRENGTH- 25 MG, 100 MG.  DOSE- 25 MG-200 MG DAILY.
     Route: 048
     Dates: start: 20011207
  4. SEROQUEL [Suspect]
     Dosage: STRENGTH- 25 MG, 100 MG.  DOSE- 25 MG-200 MG DAILY.
     Route: 048
     Dates: start: 20011207
  5. ABILIFY [Concomitant]
     Dates: start: 20010101, end: 20030101
  6. GEODON [Concomitant]
     Dates: start: 20010101, end: 20040101
  7. RISPERDAL [Concomitant]
     Dates: start: 20010101, end: 20030101
  8. THORAZINE [Concomitant]
     Dosage: 100 TO 150 MG
     Dates: start: 19920101, end: 20000101
  9. WELLBUTRIN [Concomitant]
     Dates: start: 19920101
  10. TRAZODONE [Concomitant]
  11. ZELNORM [Concomitant]
  12. LAMICTAL [Concomitant]
  13. LEXAPRO [Concomitant]
  14. DEPAKOTE [Concomitant]
  15. LITHIUM [Concomitant]
  16. ZYPREXA [Concomitant]
  17. CELEXA [Concomitant]

REACTIONS (1)
  - PANCREATITIS [None]
